FAERS Safety Report 22246315 (Version 1)
Quarter: 2023Q2

REPORT INFORMATION
  Report Type: Spontaneous
  Country: CA (occurrence: CA)
  Receive Date: 20230424
  Receipt Date: 20230424
  Transmission Date: 20230722
  Serious: Yes (Other)
  Sender: FDA-Public Use
  Company Number: CA-PFIZER INC-202300121929

PATIENT
  Age: 66 Year
  Sex: Male

DRUGS (4)
  1. RUXIENCE [Suspect]
     Active Substance: RITUXIMAB-PVVR
     Indication: Rheumatoid arthritis
     Dosage: 1000 MG, DAY1  AND 15
     Route: 042
     Dates: start: 20210226, end: 20210312
  2. RUXIENCE [Suspect]
     Active Substance: RITUXIMAB-PVVR
     Dosage: 1000 MG, DAY1  AND 15
     Route: 042
     Dates: start: 20210928, end: 20211012
  3. RUXIENCE [Suspect]
     Active Substance: RITUXIMAB-PVVR
     Dosage: 1000 MG, DAY1  AND 15
     Route: 042
     Dates: start: 20220401, end: 20221021
  4. RUXIENCE [Suspect]
     Active Substance: RITUXIMAB-PVVR
     Dosage: 1000 MG, DAY1  AND 15
     Route: 042
     Dates: start: 20221021

REACTIONS (6)
  - Respiratory syncytial virus infection [Recovered/Resolved]
  - Ear infection viral [Recovered/Resolved]
  - Eye infection viral [Recovered/Resolved]
  - Diabetes mellitus [Unknown]
  - Blood pressure increased [Unknown]
  - Weight decreased [Unknown]

NARRATIVE: CASE EVENT DATE: 20230101
